FAERS Safety Report 8377994-5 (Version None)
Quarter: 2012Q2

REPORT INFORMATION
  Report Type: 
  Country: None (occurrence: None)
  Receive Date: 20120522
  Receipt Date: 20120509
  Transmission Date: 20120825
  Serious: Yes (Other)
  Sender: FDA-Public Use
  Company Number: JP-JNJFOC-20120511343

PATIENT
  Sex: Female

DRUGS (1)
  1. RISPERDAL [Suspect]
     Indication: HALLUCINATION, AUDITORY
     Route: 048
     Dates: start: 20000101

REACTIONS (5)
  - DRUG DEPENDENCE [None]
  - CONSTIPATION [None]
  - HAEMORRHOIDS [None]
  - WEIGHT INCREASED [None]
  - FRUSTRATION [None]
